FAERS Safety Report 14176049 (Version 2)
Quarter: 2017Q4

REPORT INFORMATION
  Report Type: Spontaneous
  Country: IT (occurrence: IT)
  Receive Date: 20171109
  Receipt Date: 20171227
  Transmission Date: 20180321
  Serious: Yes (Hospitalization)
  Sender: FDA-Public Use
  Company Number: PHHY2017IT163424

PATIENT
  Age: 4 Year
  Sex: Female

DRUGS (1)
  1. DEFERASIROX [Suspect]
     Active Substance: DEFERASIROX
     Indication: THALASSAEMIA
     Dosage: UNK
     Route: 065

REACTIONS (6)
  - Hyperammonaemia [Unknown]
  - Vomiting [Recovering/Resolving]
  - Altered state of consciousness [Recovering/Resolving]
  - Renal tubular acidosis [Unknown]
  - Metabolic acidosis [Unknown]
  - Pyrexia [Recovering/Resolving]
